FAERS Safety Report 19394662 (Version 1)
Quarter: 2021Q2

REPORT INFORMATION
  Report Type: Spontaneous
  Country: ES (occurrence: ES)
  Receive Date: 20210609
  Receipt Date: 20210609
  Transmission Date: 20210717
  Serious: Yes (Life-Threatening, Hospitalization, Other)
  Sender: FDA-Public Use
  Company Number: ALC2020ES007788

PATIENT

DRUGS (5)
  1. CEFTRIAXONE. [Concomitant]
     Active Substance: CEFTRIAXONE
     Indication: PRODUCT USED FOR UNKNOWN INDICATION
     Route: 065
  2. MOXIFLOXACIN. [Suspect]
     Active Substance: MOXIFLOXACIN
     Indication: ATYPICAL PNEUMONIA
     Dosage: 400 MG, QD
     Route: 048
  3. TAMIFLU [Concomitant]
     Active Substance: OSELTAMIVIR PHOSPHATE
     Indication: PRODUCT USED FOR UNKNOWN INDICATION
     Route: 065
  4. AZITHROMYCIN ANHYDROUS. [Concomitant]
     Active Substance: AZITHROMYCIN ANHYDROUS
     Indication: PRODUCT USED FOR UNKNOWN INDICATION
     Route: 065
  5. PILOCARPINE. [Suspect]
     Active Substance: PILOCARPINE
     Indication: IRIS TRANSILLUMINATION DEFECT
     Dosage: DILUTED 0.125 PERCENT, AND TO A CONC HIGHER THAN 2 PERCE
     Route: 065

REACTIONS (7)
  - Acute respiratory distress syndrome [Unknown]
  - Conjunctival hyperaemia [Unknown]
  - Iris transillumination defect [Not Recovered/Not Resolved]
  - Therapy non-responder [Unknown]
  - Miosis [Unknown]
  - Pneumonia [Unknown]
  - Influenza B virus test positive [Unknown]
